FAERS Safety Report 24986107 (Version 1)
Quarter: 2025Q1

REPORT INFORMATION
  Report Type: Spontaneous
  Country: US (occurrence: US)
  Receive Date: 20250219
  Receipt Date: 20250219
  Transmission Date: 20250409
  Serious: Yes (Hospitalization)
  Sender: NIPPON SHINYAKU
  Company Number: US-NIPPON SHINYAKU-NIP-2025-000010

PATIENT
  Sex: Male

DRUGS (1)
  1. VILTOLARSEN [Suspect]
     Active Substance: VILTOLARSEN
     Indication: Product used for unknown indication
     Dosage: 6250 MG, QWK
     Route: 042

REACTIONS (1)
  - Adverse event [Unknown]
